FAERS Safety Report 18427614 (Version 1)
Quarter: 2020Q4

REPORT INFORMATION
  Report Type: Spontaneous
  Country: US (occurrence: US)
  Receive Date: 20201026
  Receipt Date: 20201026
  Transmission Date: 20210114
  Serious: Yes (Other)
  Sender: FDA-Public Use
  Company Number: US-PFIZER INC-2020411790

PATIENT
  Age: 39 Year
  Sex: Female

DRUGS (3)
  1. XELJANZ XR [Suspect]
     Active Substance: TOFACITINIB CITRATE
     Indication: RHEUMATOID ARTHRITIS
     Dosage: 11 MG, DAILY; ORIGINAL START OF THERAPY IN 2015-2016
     Route: 048
     Dates: end: 201912
  2. XELJANZ XR [Suspect]
     Active Substance: TOFACITINIB CITRATE
     Dosage: 11 MG, DAILY
     Route: 048
     Dates: end: 202004
  3. XELJANZ XR [Suspect]
     Active Substance: TOFACITINIB CITRATE
     Dosage: 11 MG, DAILY
     Route: 048
     Dates: start: 202006

REACTIONS (7)
  - Fatigue [Recovering/Resolving]
  - Pruritus [Recovering/Resolving]
  - Pneumonia [Recovered/Resolved]
  - Food allergy [Recovered/Resolved]
  - Hypertonic bladder [Recovering/Resolving]
  - Rash [Recovering/Resolving]
  - Therapeutic response unexpected [Unknown]
